FAERS Safety Report 4632634-3 (Version None)
Quarter: 2005Q2

REPORT INFORMATION
  Report Type: 
  Country: None (occurrence: None)
  Receive Date: 20050331
  Receipt Date: 20040830
  Transmission Date: 20051028
  Serious: Yes (Other)
  Sender: FDA-Public Use
  Company Number: 200414234BCC

PATIENT
  Age: 75 Year
  Sex: Female
  Weight: 54.8852 kg

DRUGS (6)
  1. ALEVE [Suspect]
     Indication: ARTHRALGIA
     Dosage: 220 MG, IRR, ORAL
     Route: 048
  2. ASPIRIN REGIMEN (ACETYLSALICYLIC ACID) [Suspect]
     Dosage: 81 MG
  3. PREMARIN [Concomitant]
  4. VITAMIN E [Concomitant]
  5. VITAMIN C [Concomitant]
  6. CALCIUM GLUCONATE [Concomitant]

REACTIONS (1)
  - EPISTAXIS [None]
